FAERS Safety Report 11323620 (Version 4)
Quarter: 2015Q4

REPORT INFORMATION
  Report Type: Spontaneous
  Country: US (occurrence: US)
  Receive Date: 20150730
  Receipt Date: 20151104
  Transmission Date: 20160304
  Serious: Yes (Hospitalization)
  Sender: FDA-Public Use
  Company Number: US-ELI_LILLY_AND_COMPANY-US201507009418

PATIENT
  Age: 79 Year
  Sex: Male

DRUGS (4)
  1. FORTEO [Suspect]
     Active Substance: TERIPARATIDE
     Dosage: UNK, QD
     Route: 065
  2. FORTEO [Suspect]
     Active Substance: TERIPARATIDE
     Indication: OSTEOPOROSIS
     Dosage: UNK, QD
     Route: 065
     Dates: start: 20150723
  3. IRON [Concomitant]
     Active Substance: IRON
     Dosage: UNK
  4. RECLAST [Concomitant]
     Active Substance: ZOLEDRONIC ACID
     Dosage: UNK

REACTIONS (10)
  - Injection site warmth [Unknown]
  - Injection site pain [Unknown]
  - Injection site injury [Unknown]
  - Injection site induration [Unknown]
  - Gait disturbance [Unknown]
  - Drug dose omission [Unknown]
  - Incorrect dose administered [Unknown]
  - Silent myocardial infarction [Unknown]
  - Bone disorder [Unknown]
  - Injection site haemorrhage [Unknown]

NARRATIVE: CASE EVENT DATE: 20150723
